FAERS Safety Report 17635303 (Version 4)
Quarter: 2021Q4

REPORT INFORMATION
  Report Type: Spontaneous
  Country: US (occurrence: US)
  Receive Date: 20200406
  Receipt Date: 20211020
  Transmission Date: 20220303
  Serious: Yes (Hospitalization, Disabling, Other)
  Sender: FDA-Public Use
  Company Number: US-PURDUE PHARMA-USA-2020-0150975

PATIENT
  Sex: Male

DRUGS (5)
  1. OXYCONTIN [Suspect]
     Active Substance: OXYCODONE HYDROCHLORIDE
     Indication: Arthralgia
     Dosage: 15 MG, 150 TABLETS A MONTH
     Route: 048
     Dates: end: 2019
  2. OXYCONTIN [Suspect]
     Active Substance: OXYCODONE HYDROCHLORIDE
     Indication: Knee arthroplasty
  3. OXYCODONE HYDROCHLORIDE [Suspect]
     Active Substance: OXYCODONE HYDROCHLORIDE
     Indication: Arthralgia
     Dosage: 15 MG, UNK
     Route: 048
  4. OXYCODONE HYDROCHLORIDE [Suspect]
     Active Substance: OXYCODONE HYDROCHLORIDE
     Indication: Knee arthroplasty
  5. OXYCODONE HYDROCHLORIDE [Suspect]
     Active Substance: OXYCODONE HYDROCHLORIDE
     Indication: Knee arthroplasty
     Dosage: UNKNOWN
     Route: 065

REACTIONS (10)
  - Cerebrovascular accident [Not Recovered/Not Resolved]
  - Loss of consciousness [Unknown]
  - Hemiplegia [Not Recovered/Not Resolved]
  - Post procedural complication [Unknown]
  - Knee arthroplasty [Unknown]
  - Overdose [Unknown]
  - Cardiac disorder [Unknown]
  - Learning disability [Unknown]
  - Developmental delay [Unknown]
  - Loss of personal independence in daily activities [Unknown]

NARRATIVE: CASE EVENT DATE: 20040101
